FAERS Safety Report 23513267 (Version 1)
Quarter: 2024Q1

REPORT INFORMATION
  Report Type: Spontaneous
  Country: US (occurrence: US)
  Receive Date: 20240212
  Receipt Date: 20240212
  Transmission Date: 20240409
  Serious: No
  Sender: FDA-Public Use
  Company Number: US-RECORDATI RARE DISEASE INC.-2023000012

PATIENT
  Age: 39 Year
  Sex: Female

DRUGS (1)
  1. HEMIN [Suspect]
     Active Substance: HEMIN
     Indication: Porphyria acute
     Dosage: UNK UNK, UNK
     Route: 042

REACTIONS (1)
  - Thrombophlebitis [Unknown]
